FAERS Safety Report 24561656 (Version 2)
Quarter: 2024Q4

REPORT INFORMATION
  Report Type: Spontaneous
  Country: JP (occurrence: JP)
  Receive Date: 20241029
  Receipt Date: 20241111
  Transmission Date: 20250115
  Serious: Yes (Death, Other)
  Sender: INCYTE
  Company Number: JP-002147023-NVSJ2024JP012687

PATIENT

DRUGS (1)
  1. RUXOLITINIB [Suspect]
     Active Substance: RUXOLITINIB
     Indication: Myelofibrosis
     Dosage: UNK
     Route: 048

REACTIONS (5)
  - Infection [Fatal]
  - Pneumonia [Unknown]
  - Myelofibrosis [Fatal]
  - Malignant neoplasm progression [Fatal]
  - Oesophageal varices haemorrhage [Fatal]
